FAERS Safety Report 6584544-2 (Version None)
Quarter: 2010Q1

REPORT INFORMATION
  Report Type: 
  Country: None (occurrence: None)
  Receive Date: 20100213
  Receipt Date: 20100213
  Transmission Date: 20100710
  Serious: No
  Sender: FDA-Public Use
  Company Number: None

PATIENT
  Sex: Female

DRUGS (2)
  1. ADDERALL 30 [Suspect]
     Indication: ATTENTION DEFICIT/HYPERACTIVITY DISORDER
     Dosage: 30MG 1.5 AM; 1 PM ORAL
     Route: 048
     Dates: start: 20070101
  2. ADDERALL 30 [Suspect]
     Indication: SLEEP DISORDER
     Dosage: 30MG 1.5 AM; 1 PM ORAL
     Route: 048
     Dates: start: 20070101

REACTIONS (5)
  - ASTHENIA [None]
  - DRUG INEFFECTIVE [None]
  - IMPAIRED DRIVING ABILITY [None]
  - PRODUCT SUBSTITUTION ISSUE [None]
  - SUDDEN ONSET OF SLEEP [None]
